FAERS Safety Report 13074723 (Version 2)
Quarter: 2018Q1

REPORT INFORMATION
  Report Type: Spontaneous
  Country: US (occurrence: US)
  Receive Date: 20161230
  Receipt Date: 20180122
  Transmission Date: 20180508
  Serious: No
  Sender: FDA-Public Use
  Company Number: US-TEVA-698219USA

PATIENT
  Sex: Male

DRUGS (4)
  1. TRAZODONE [Suspect]
     Active Substance: TRAZODONE HYDROCHLORIDE
     Indication: INSOMNIA
     Dosage: 50 MILLIGRAM DAILY;
     Route: 065
     Dates: start: 20141211
  2. TRAZODONE [Suspect]
     Active Substance: TRAZODONE HYDROCHLORIDE
     Indication: STRESS
     Dosage: 50 MILLIGRAM DAILY;
     Route: 065
     Dates: start: 20160127
  3. ESCITALOPRAM [Concomitant]
     Active Substance: ESCITALOPRAM OXALATE
     Indication: STRESS
     Dosage: 40 MILLIGRAM DAILY;
  4. LOVASTATIN. [Concomitant]
     Active Substance: LOVASTATIN
     Dosage: 40  DAILY;

REACTIONS (10)
  - Nervousness [Unknown]
  - Libido decreased [Unknown]
  - Irritability [Unknown]
  - Blood testosterone abnormal [Unknown]
  - Erectile dysfunction [Unknown]
  - Drug dose omission [Unknown]
  - Night sweats [Unknown]
  - Product use in unapproved indication [Unknown]
  - Fatigue [Unknown]
  - Dyspnoea [Unknown]

NARRATIVE: CASE EVENT DATE: 2016
